FAERS Safety Report 13343695 (Version 1)
Quarter: 2017Q1

REPORT INFORMATION
  Report Type: Report from Study
  Country: US (occurrence: US)
  Receive Date: 20170316
  Receipt Date: 20170316
  Transmission Date: 20170428
  Serious: Yes (Hospitalization)
  Sender: FDA-Public Use
  Company Number: PHHO2017US001668

PATIENT
  Sex: Female
  Weight: 62.1 kg

DRUGS (4)
  1. PAZOPANIB [Suspect]
     Active Substance: PAZOPANIB
     Indication: ALVEOLAR SOFT PART SARCOMA
     Dosage: 800 MG, QD
     Route: 048
     Dates: start: 20160413, end: 20160428
  2. PAZOPANIB [Suspect]
     Active Substance: PAZOPANIB
     Dosage: 800 MG, QD
     Route: 048
     Dates: start: 20160502, end: 20160523
  3. PAZOPANIB [Suspect]
     Active Substance: PAZOPANIB
     Dosage: 800 MG, QD
     Route: 048
     Dates: start: 20160913, end: 20160919
  4. OXYCODONE [Suspect]
     Active Substance: OXYCODONE
     Indication: TUMOUR PAIN
     Dosage: UNK UNK, BID
     Route: 065
     Dates: start: 201603

REACTIONS (5)
  - Dehydration [Recovered/Resolved with Sequelae]
  - Photophobia [Recovered/Resolved with Sequelae]
  - Vomiting [Recovered/Resolved with Sequelae]
  - Wound infection [Recovering/Resolving]
  - Headache [Recovered/Resolved with Sequelae]

NARRATIVE: CASE EVENT DATE: 20160501
